FAERS Safety Report 4612018-4 (Version None)
Quarter: 2005Q1

REPORT INFORMATION
  Report Type: 
  Country: None (occurrence: None)
  Receive Date: 20050317
  Receipt Date: 20050310
  Transmission Date: 20050727
  Serious: Yes (Disabling)
  Sender: FDA-Public Use
  Company Number: US-MERCK-0503USA01585

PATIENT
  Age: 73 Year
  Sex: Female

DRUGS (2)
  1. VIOXX [Suspect]
     Indication: PAIN
     Route: 048
     Dates: start: 20010301, end: 20040930
  2. SYNTHROID [Concomitant]
     Route: 065

REACTIONS (2)
  - DYSPEPSIA [None]
  - DYSPNOEA [None]
